FAERS Safety Report 11875453 (Version 1)
Quarter: 2015Q4

REPORT INFORMATION
  Report Type: Report from Study
  Country: MX (occurrence: MX)
  Receive Date: 20151229
  Receipt Date: 20151229
  Transmission Date: 20160305
  Serious: Yes (Other)
  Sender: FDA-Public Use
  Company Number: PHHY2015MX167453

PATIENT
  Sex: Female

DRUGS (1)
  1. SEEBRI BREEZHALER [Suspect]
     Active Substance: GLYCOPYRROLATE
     Indication: PRODUCTIVE COUGH
     Dosage: 2 DF, QD
     Route: 065

REACTIONS (2)
  - Pulmonary oedema [Unknown]
  - Off label use [Not Recovered/Not Resolved]
